FAERS Safety Report 23914333 (Version 1)
Quarter: 2024Q2

REPORT INFORMATION
  Report Type: Report from Study
  Country: US (occurrence: US)
  Receive Date: 20240529
  Receipt Date: 20240529
  Transmission Date: 20240716
  Serious: Yes (Hospitalization)
  Sender: FDA-Public Use
  Company Number: US-JAZZ-2020-US-005422

PATIENT
  Age: 57 Year
  Sex: Female

DRUGS (28)
  1. XYREM [Suspect]
     Active Substance: SODIUM OXYBATE
     Indication: Narcolepsy
     Dosage: 2.25 GRAM, BID
     Route: 048
     Dates: start: 201404, end: 201404
  2. XYREM [Suspect]
     Active Substance: SODIUM OXYBATE
     Indication: Cataplexy
     Dosage: DOSE ADJUSTMENT
     Route: 048
     Dates: start: 201404, end: 201502
  3. XYREM [Suspect]
     Active Substance: SODIUM OXYBATE
     Indication: Somnolence
     Dosage: 4.5 GRAM, BID
     Route: 048
     Dates: start: 201502, end: 201611
  4. XYREM [Suspect]
     Active Substance: SODIUM OXYBATE
     Dosage: 2.25 GRAM, BID
     Route: 048
     Dates: start: 201708, end: 201708
  5. XYREM [Suspect]
     Active Substance: SODIUM OXYBATE
     Dosage: DOSE ADJUSTMENT
     Route: 048
     Dates: start: 201708, end: 201711
  6. XYREM [Suspect]
     Active Substance: SODIUM OXYBATE
     Dosage: 6 GRAM,FIRST DOSE
     Route: 048
     Dates: start: 201711
  7. XYREM [Suspect]
     Active Substance: SODIUM OXYBATE
     Dosage: 3 GRAM,SECOND DOSE
     Route: 048
     Dates: start: 201711
  8. NUVIGIL [Suspect]
     Active Substance: ARMODAFINIL
     Indication: Product used for unknown indication
     Dosage: UNK
     Dates: start: 20170530, end: 2017
  9. PREGABALIN [Concomitant]
     Active Substance: PREGABALIN
  10. GABAPENTIN [Concomitant]
     Active Substance: GABAPENTIN
  11. CELEXA [Concomitant]
     Active Substance: CITALOPRAM HYDROBROMIDE
  12. RITALIN [Concomitant]
     Active Substance: METHYLPHENIDATE HYDROCHLORIDE
  13. CYPROHEPTADINE [Concomitant]
     Active Substance: CYPROHEPTADINE
  14. ESTRACE [Concomitant]
     Active Substance: ESTRADIOL
  15. MONTELUKAST SODIUM [Concomitant]
     Active Substance: MONTELUKAST SODIUM
  16. RANITIDINE [Concomitant]
     Active Substance: RANITIDINE
  17. SINGULAIR [Concomitant]
     Active Substance: MONTELUKAST SODIUM
  18. ZANTAC [Concomitant]
     Active Substance: RANITIDINE HYDROCHLORIDE
  19. TYLENOL EXTRA STRENGTH [Concomitant]
     Active Substance: ACETAMINOPHEN
  20. ZYRTEC [Concomitant]
     Active Substance: CETIRIZINE HYDROCHLORIDE
  21. BIOTIN [Concomitant]
     Active Substance: BIOTIN
  22. ESTROGENS [Concomitant]
     Active Substance: ESTROGENS
  23. LEXAPRO [Concomitant]
     Active Substance: ESCITALOPRAM OXALATE
  24. VITAMIN D3 [Concomitant]
     Active Substance: CHOLECALCIFEROL
  25. PROGESTERONE [Concomitant]
     Active Substance: PROGESTERONE
  26. MAGNESIUM CITRATE [Concomitant]
     Active Substance: MAGNESIUM CITRATE
  27. PROZAC [Concomitant]
     Active Substance: FLUOXETINE HYDROCHLORIDE
  28. WELLBUTRIN [Concomitant]
     Active Substance: BUPROPION HYDROCHLORIDE

REACTIONS (8)
  - Hospitalisation [Unknown]
  - Pruritus [Unknown]
  - Dry skin [Not Recovered/Not Resolved]
  - Dry eye [Not Recovered/Not Resolved]
  - Restless legs syndrome [Recovered/Resolved]
  - Weight increased [Unknown]
  - Rash [Unknown]
  - Depression [Recovered/Resolved]

NARRATIVE: CASE EVENT DATE: 20200419
